FAERS Safety Report 7747646-0 (Version None)
Quarter: 2011Q3

REPORT INFORMATION
  Report Type: 
  Country: None (occurrence: None)
  Receive Date: 20110913
  Receipt Date: 20110909
  Transmission Date: 20111222
  Serious: Yes (Life-Threatening, Hospitalization, Other)
  Sender: FDA-Public Use
  Company Number: US-ASTRAZENECA-2010SE50192

PATIENT
  Age: 38 Year
  Sex: Female
  Weight: 111.1 kg

DRUGS (25)
  1. SEROQUEL [Suspect]
     Route: 048
  2. RISPERIDONE [Concomitant]
  3. TRICOR [Concomitant]
     Indication: CARDIAC DISORDER
  4. PRAZOSIN HCL [Concomitant]
     Indication: CARDIAC DISORDER
  5. SIMVASTATIN [Concomitant]
     Indication: CARDIAC DISORDER
  6. ATIVAN [Concomitant]
     Dosage: 1 MG EVERY 8 HOURS PRN
     Route: 048
     Dates: end: 20110630
  7. PLAVIX [Concomitant]
     Indication: CARDIAC DISORDER
     Route: 048
  8. MULTI-DAY [Concomitant]
     Route: 048
  9. AMBIEN [Concomitant]
     Indication: INSOMNIA
  10. LISINOPRIL [Concomitant]
     Indication: CARDIAC DISORDER
     Route: 048
  11. BYSTOLIC [Concomitant]
     Route: 048
  12. TAPAZOLE [Concomitant]
     Route: 048
     Dates: end: 20110630
  13. PRILOSEC OTC [Suspect]
     Route: 048
  14. LORTAB [Concomitant]
     Indication: BACK PAIN
     Dosage: 10/500 MG DAILY
     Route: 048
     Dates: start: 20100923
  15. SOMA [Concomitant]
     Indication: PAIN
  16. ZOCOR [Concomitant]
     Route: 048
  17. XANAX [Concomitant]
     Indication: ANXIETY
     Route: 048
     Dates: start: 20101110
  18. BENICAR [Concomitant]
     Indication: HYPERTENSION
     Route: 048
     Dates: start: 20110415
  19. PAXIL [Concomitant]
     Route: 048
  20. SEROQUEL [Suspect]
     Indication: BIPOLAR DISORDER
     Route: 048
  21. WELLBUTRIN [Concomitant]
  22. BIRTH CONTROL [Concomitant]
  23. LORTAB [Concomitant]
     Indication: PAIN
     Dosage: 10/500 MG DAILY
     Route: 048
     Dates: start: 20100923
  24. LAMICTAL [Concomitant]
  25. ASPIRIN [Concomitant]
     Route: 048

REACTIONS (14)
  - CARDIAC DISORDER [None]
  - ANXIETY [None]
  - INTENTIONAL SELF-INJURY [None]
  - DEPRESSION [None]
  - HYPERTHYROIDISM [None]
  - PAIN [None]
  - FATIGUE [None]
  - DRUG INEFFECTIVE [None]
  - SUICIDE ATTEMPT [None]
  - WEIGHT INCREASED [None]
  - CORONARY ARTERY OCCLUSION [None]
  - MENSTRUATION IRREGULAR [None]
  - MYOCARDIAL INFARCTION [None]
  - BIPOLAR DISORDER [None]
